FAERS Safety Report 4706924-X (Version None)
Quarter: 2005Q3

REPORT INFORMATION
  Report Type: 
  Country: None (occurrence: None)
  Receive Date: 20050701
  Receipt Date: 20050623
  Transmission Date: 20060218
  Serious: Yes (Other)
  Sender: FDA-Public Use
  Company Number: 2005044721

PATIENT
  Age: 70 Year
  Sex: Female
  Weight: 64.8644 kg

DRUGS (2)
  1. XALATAN [Suspect]
     Indication: INTRAOCULAR PRESSURE TEST
     Dosage: OPTHALMIC
     Route: 047
     Dates: start: 20040101
  2. METAGLIP (GLIPIZIDE, METFORMIN HYDROCHLORIDE) [Concomitant]

REACTIONS (3)
  - CATARACT [None]
  - VICTIM OF CRIME [None]
  - WEIGHT DECREASED [None]
